FAERS Safety Report 10461069 (Version 1)
Quarter: 2014Q3

REPORT INFORMATION
  Report Type: Spontaneous
  Country: US (occurrence: None)
  Receive Date: 20140917
  Receipt Date: 20140917
  Transmission Date: 20150326
  Serious: No
  Sender: FDA-Public Use
  Company Number: None

PATIENT

DRUGS (2)
  1. CELEBREX [Suspect]
     Active Substance: CELECOXIB
  2. CYMBALTA [Suspect]
     Active Substance: DULOXETINE HYDROCHLORIDE

REACTIONS (8)
  - Wrong drug administered [None]
  - Fear [None]
  - Emotional distress [None]
  - Depression [None]
  - Drug dispensing error [None]
  - Anxiety [None]
  - Crying [None]
  - Panic attack [None]

NARRATIVE: CASE EVENT DATE: 2014
